FAERS Safety Report 19212190 (Version 1)
Quarter: 2021Q2

REPORT INFORMATION
  Report Type: Spontaneous
  Country: US (occurrence: US)
  Receive Date: 20210504
  Receipt Date: 20210504
  Transmission Date: 20210717
  Serious: Yes (Death)
  Sender: FDA-Public Use
  Company Number: US-MYLANLABS-2021M1025864

PATIENT
  Age: 56 Year
  Weight: 91 kg

DRUGS (2)
  1. CARBOPLATIN INJECTION [Suspect]
     Active Substance: CARBOPLATIN
     Indication: PRODUCT USED FOR UNKNOWN INDICATION
     Dosage: UNK 450/45 MILLIGRAM PER MILLILITRE
  2. CINVANTI [Suspect]
     Active Substance: APREPITANT
     Indication: PRODUCT USED FOR UNKNOWN INDICATION
     Dosage: UNK (130/18 MILLIGRAM PER MILLILITRE)
     Route: 042

REACTIONS (1)
  - Death [Fatal]
